FAERS Safety Report 18508465 (Version 1)
Quarter: 2020Q4

REPORT INFORMATION
  Report Type: Other
  Country: JP (occurrence: JP)
  Receive Date: 20201116
  Receipt Date: 20201116
  Transmission Date: 20210114
  Serious: Yes (Death)
  Sender: FDA-Public Use
  Company Number: JP-ROCHE-2714033

PATIENT
  Age: 70 Year
  Sex: Female

DRUGS (7)
  1. RITUXAN [Suspect]
     Active Substance: RITUXIMAB
     Indication: DIFFUSE LARGE B-CELL LYMPHOMA
     Route: 041
  2. VINCRISTINE [Concomitant]
     Active Substance: VINCRISTINE
  3. PREDNISONE. [Concomitant]
     Active Substance: PREDNISONE
  4. MELPHALAN. [Concomitant]
     Active Substance: MELPHALAN
  5. DOXORUBICIN [Concomitant]
     Active Substance: DOXORUBICIN
  6. LENALIDOMIDE [Concomitant]
     Active Substance: LENALIDOMIDE
  7. CYCLOPHOSPHAMIDE. [Concomitant]
     Active Substance: CYCLOPHOSPHAMIDE

REACTIONS (1)
  - Epstein-Barr virus associated lymphoma [Fatal]
